FAERS Safety Report 12297467 (Version 1)
Quarter: 2016Q2

REPORT INFORMATION
  Report Type: Spontaneous
  Country: US (occurrence: US)
  Receive Date: 20160422
  Receipt Date: 20160422
  Transmission Date: 20160815
  Serious: No
  Sender: FDA-Public Use
  Company Number: US-PERRIGO-15US007052

PATIENT
  Age: 72 Year
  Sex: Female
  Weight: 99.77 kg

DRUGS (9)
  1. ECOTRIN [Concomitant]
     Active Substance: ASPIRIN
     Indication: PRODUCT USED FOR UNKNOWN INDICATION
     Dosage: UNK, 3 TIMES WEEKLY
     Route: 065
  2. PRESCRIBED MEDICATION FOR HYPOTHYROIDISM [Concomitant]
     Indication: HYPOTHYROIDISM
     Dosage: UNK
     Route: 065
  3. CLOBETASOL PROPIONATE. [Suspect]
     Active Substance: CLOBETASOL PROPIONATE
     Dosage: GOLF BALL SIZE AMOUNT, THREE TIMES WEEKLY
     Route: 061
     Dates: start: 201507
  4. PRESCRIBED MEDICATION FOR FLUID RETENTION [Concomitant]
     Indication: FLUID RETENTION
     Dosage: UNK
     Route: 065
  5. CLOBETASOL PROPIONATE. [Suspect]
     Active Substance: CLOBETASOL PROPIONATE
     Indication: PSORIASIS
     Dosage: GOLF BALL SIZE AMOUNT, THREE TIMES WEEKLY
     Route: 061
     Dates: end: 201505
  6. CLOBETASOL PROPIONATE. [Suspect]
     Active Substance: CLOBETASOL PROPIONATE
     Dosage: GOLF BALL SIZE AMOUNT, THREE TIMES WEEKLY
     Route: 061
     Dates: start: 201505, end: 201506
  7. PRESCRIBED MEDICATION FOR GOUT [Concomitant]
     Indication: GOUT
     Dosage: UNK
     Route: 065
  8. CLOBETASOL PROPIONATE. [Suspect]
     Active Substance: CLOBETASOL PROPIONATE
     Dosage: UNKNOWN AMOUNT OF LIQUID, THREE TIMES WEEKLY
     Route: 061
     Dates: start: 201506, end: 201507
  9. PRESCRIBED MEDICATION FOR ARTHRITIS [Concomitant]
     Indication: ARTHRITIS
     Dosage: UNK
     Route: 065

REACTIONS (3)
  - Inappropriate schedule of drug administration [Not Recovered/Not Resolved]
  - Wrong technique in product usage process [Recovered/Resolved]
  - Application site pain [Recovered/Resolved]

NARRATIVE: CASE EVENT DATE: 201506
